FAERS Safety Report 7782199-2 (Version None)
Quarter: 2011Q3

REPORT INFORMATION
  Report Type: 
  Country: None (occurrence: None)
  Receive Date: 20110927
  Receipt Date: 20110921
  Transmission Date: 20111222
  Serious: Yes (Other)
  Sender: FDA-Public Use
  Company Number: US-SANOFI-AVENTIS-2011SA062008

PATIENT
  Sex: Male

DRUGS (3)
  1. GABAPENTIN [Concomitant]
  2. PLAVIX [Suspect]
     Indication: THROMBOSIS PROPHYLAXIS
     Route: 065
     Dates: start: 20040101
  3. PLAVIX [Suspect]
     Indication: STENT PLACEMENT
     Route: 065
     Dates: start: 20040101

REACTIONS (4)
  - DELIRIUM [None]
  - NEUROPATHY PERIPHERAL [None]
  - RECTAL HAEMORRHAGE [None]
  - CONTUSION [None]
